FAERS Safety Report 6161627-2 (Version None)
Quarter: 2009Q2

REPORT INFORMATION
  Report Type: 
  Country: None (occurrence: None)
  Receive Date: 20090421
  Receipt Date: 20090414
  Transmission Date: 20091009
  Serious: Yes (Other)
  Sender: FDA-Public Use
  Company Number: US-ASTRAZENECA-2009UW09441

PATIENT
  Age: 44 Year
  Sex: Male

DRUGS (9)
  1. CRESTOR [Suspect]
     Dosage: 10 MG
     Route: 048
  2. PREDNISONE [Concomitant]
  3. PHOSLO [Concomitant]
  4. LOVAZA [Concomitant]
  5. LISINOPRIL [Concomitant]
  6. SODIUM BICARBONATE [Concomitant]
  7. CLARITIN [Concomitant]
  8. AMLODIPINE [Concomitant]
  9. CLONIDINE [Concomitant]

REACTIONS (1)
  - RENAL FAILURE ACUTE [None]
